FAERS Safety Report 21264417 (Version 1)
Quarter: 2022Q3

REPORT INFORMATION
  Report Type: Spontaneous
  Country: US (occurrence: None)
  Receive Date: 20220826
  Receipt Date: 20220826
  Transmission Date: 20221027
  Serious: Yes (Hospitalization)
  Sender: FDA-Public Use
  Company Number: None

PATIENT
  Sex: Male
  Weight: 21.9 kg

DRUGS (5)
  1. CYTARABINE [Suspect]
     Active Substance: CYTARABINE
     Dates: end: 20220714
  2. DEXAMETHASONE [Suspect]
     Active Substance: DEXAMETHASONE
     Dates: end: 20220811
  3. METHOTREXATE [Suspect]
     Active Substance: METHOTREXATE
     Dates: end: 20220811
  4. ONCASPAR [Suspect]
     Active Substance: PEGASPARGASE
     Dates: end: 20220718
  5. VINCRISTINE SULFATE [Suspect]
     Active Substance: VINCRISTINE SULFATE
     Dates: end: 20220805

REACTIONS (11)
  - Respiratory failure [None]
  - Abdominal pain [None]
  - Cushingoid [None]
  - Stridor [None]
  - Vocal cord erythema [None]
  - Laryngeal oedema [None]
  - Cough [None]
  - Oropharyngeal pain [None]
  - Increased bronchial secretion [None]
  - Tracheomalacia [None]
  - Ear, nose and throat examination abnormal [None]

NARRATIVE: CASE EVENT DATE: 20220815
